FAERS Safety Report 8102648-X (Version None)
Quarter: 2011Q4

REPORT INFORMATION
  Report Type: 
  Country: None (occurrence: None)
  Receive Date: 20111222
  Receipt Date: 20111012
  Transmission Date: 20120403
  Serious: Yes (Hospitalization)
  Sender: FDA-Public Use
  Company Number: UTC-010069

PATIENT
  Age: 38 Year
  Weight: 177.3 kg

DRUGS (5)
  1. TYVASO [Suspect]
     Indication: PULMONARY ARTERIAL HYPERTENSION
     Dosage: 216 MCG (54 MCG, 4 IN 1 D), INHALATION
     Route: 055
     Dates: start: 20100310
  2. DIURETICS (DIURETICS) [Concomitant]
  3. TRACLEER [Concomitant]
  4. COUMADIN [Concomitant]
  5. REVATIO [Concomitant]

REACTIONS (2)
  - FLUID RETENTION [None]
  - DYSPNOEA [None]
